FAERS Safety Report 9914766 (Version 1)
Quarter: 2014Q1

REPORT INFORMATION
  Report Type: Spontaneous
  Country: US (occurrence: US)
  Receive Date: 20140220
  Receipt Date: 20140220
  Transmission Date: 20141002
  Serious: No
  Sender: FDA-Public Use
  Company Number: US-TEVA-464012USA

PATIENT
  Age: 22 Year
  Sex: Female
  Weight: 73.55 kg

DRUGS (5)
  1. PLAN B ONE-STEP [Suspect]
     Indication: POST COITAL CONTRACEPTION
     Dosage: 1.5 MILLIGRAM DAILY;
     Route: 048
     Dates: start: 20140201, end: 20140201
  2. ANTIBIOTICS [Concomitant]
     Indication: INFECTION
  3. LIPOZENE [Concomitant]
     Indication: WEIGHT DECREASED
  4. ANTIINFLAMMATORY [Concomitant]
     Indication: SWELLING
  5. ANTIINFLAMMATORY [Concomitant]
     Indication: PAIN

REACTIONS (4)
  - Diarrhoea [Recovered/Resolved]
  - Back pain [Recovered/Resolved]
  - Abdominal pain upper [Recovered/Resolved]
  - Menstruation irregular [Recovered/Resolved]
